FAERS Safety Report 5139233-8 (Version None)
Quarter: 2006Q4

REPORT INFORMATION
  Report Type: 
  Country: None (occurrence: None)
  Receive Date: 20061030
  Receipt Date: 20060719
  Transmission Date: 20070319
  Serious: No
  Sender: FDA-Public Use
  Company Number: US-GLAXOSMITHKLINE-A0612794A

PATIENT
  Age: 72 Year
  Sex: Female
  Weight: 81.4 kg

DRUGS (6)
  1. ADVAIR HFA [Suspect]
     Indication: ASTHMA
     Dosage: 2PUFF TWICE PER DAY
     Route: 055
     Dates: start: 20060714
  2. SINGULAIR [Concomitant]
  3. ZOCOR [Concomitant]
  4. ALTACE [Concomitant]
  5. MOBIC [Concomitant]
  6. ALBUTEROL [Concomitant]

REACTIONS (1)
  - INCORRECT DOSE ADMINISTERED [None]
